FAERS Safety Report 5400583-9 (Version None)
Quarter: 2007Q3

REPORT INFORMATION
  Report Type: 
  Country: None (occurrence: None)
  Receive Date: 20070730
  Receipt Date: 20070724
  Transmission Date: 20080115
  Serious: Yes (Hospitalization)
  Sender: FDA-Public Use
  Company Number: FRWYE078124JUL07

PATIENT
  Age: 9 Year
  Sex: Male
  Weight: 30.5 kg

DRUGS (1)
  1. ADVIL LIQUI-GELS [Suspect]
     Dosage: ONE INTAKE IF NECESSARY
     Route: 048
     Dates: start: 20070610, end: 20070601

REACTIONS (5)
  - BLOOD PRESSURE DECREASED [None]
  - ERYSIPELAS [None]
  - PLATELET COUNT DECREASED [None]
  - PURULENT DISCHARGE [None]
  - RASH ERYTHEMATOUS [None]
